FAERS Safety Report 20081825 (Version 1)
Quarter: 2021Q4

REPORT INFORMATION
  Report Type: Spontaneous
  Country: CO (occurrence: CO)
  Receive Date: 20211117
  Receipt Date: 20211117
  Transmission Date: 20220304
  Serious: Yes (Hospitalization)
  Sender: FDA-Public Use
  Company Number: CO-SAOL THERAPEUTICS-2021SAO00354

PATIENT
  Age: 13 Year
  Sex: Male
  Weight: 23 kg

DRUGS (5)
  1. LIORESAL [Suspect]
     Active Substance: BACLOFEN
     Indication: Muscle spasticity
     Dosage: 300.1 ?G, \DAY (ALSO REPORTED AS 300 ?G/DAY)
     Route: 037
     Dates: start: 20211007, end: 20211010
  2. LIORESAL [Suspect]
     Active Substance: BACLOFEN
     Dosage: 500 ?G, \DAY
     Route: 037
     Dates: start: 20211011, end: 20211012
  3. LIORESAL [Suspect]
     Active Substance: BACLOFEN
     Dosage: 600 ?G, \DAY
     Route: 037
     Dates: start: 20211013, end: 20211013
  4. LIORESAL [Suspect]
     Active Substance: BACLOFEN
     Dosage: 400 ?G, \DAY
     Route: 037
     Dates: start: 20211014
  5. BACLOFEN [Concomitant]
     Active Substance: BACLOFEN
     Dosage: 20 MG, 3X/DAY
     Route: 048

REACTIONS (10)
  - Drug withdrawal syndrome [Recovered/Resolved]
  - Pain [Not Recovered/Not Resolved]
  - Hyperhidrosis [Not Recovered/Not Resolved]
  - Overdose [Unknown]
  - Somnolence [Unknown]
  - Hypotonia [Recovered/Resolved]
  - Complication associated with device [Unknown]
  - Pneumonia [Unknown]
  - Hydrocephalus [Unknown]
  - Hypertonia [Unknown]

NARRATIVE: CASE EVENT DATE: 20211001
